FAERS Safety Report 9071375 (Version 1)
Quarter: 2013Q1

REPORT INFORMATION
  Report Type: Report from Study
  Country: CA (occurrence: CA)
  Receive Date: 20130129
  Receipt Date: 20130129
  Transmission Date: 20140127
  Serious: Yes (Hospitalization)
  Sender: FDA-Public Use
  Company Number: CA-UCBSA-076644

PATIENT
  Age: 47 Year
  Sex: Female
  Weight: 86.5 kg

DRUGS (20)
  1. CIMZIA [Suspect]
     Indication: RHEUMATOID ARTHRITIS
     Dosage: DOSE: 200 MG/ML
     Route: 058
     Dates: start: 20110819, end: 20130121
  2. CIMZIA [Suspect]
     Indication: RHEUMATOID ARTHRITIS
     Dosage: 200 MG/ML
     Route: 058
  3. MELOXICAM [Concomitant]
     Indication: RHEUMATOID ARTHRITIS
     Route: 048
     Dates: start: 200807
  4. LEUCOVORIN CALCIUM [Concomitant]
     Indication: PROPHYLAXIS
     Route: 048
  5. LEUCOVORIN CALCIUM [Concomitant]
     Indication: PROPHYLAXIS
     Dosage: DOSE: 5MG QS ( QUANTITY SUFFICIENT)
     Route: 048
     Dates: start: 200809
  6. TYLENOL NO 3 [Concomitant]
     Indication: RHEUMATOID ARTHRITIS
     Dosage: 1 TABLET BID  AS NEEDED FOR 100 DAYS
     Route: 048
  7. TYLENOL NO 3 [Concomitant]
     Indication: RHEUMATOID ARTHRITIS
     Dosage: 1 TAB; PRN (AS NEEDED)
     Route: 048
     Dates: start: 200807
  8. CELEXA [Concomitant]
     Indication: RHEUMATOID ARTHRITIS
     Dosage: DOSE : 20 MG 2 TABLETS  FOR 100 DAYS
     Route: 048
  9. CELEXA [Concomitant]
     Indication: DEPRESSION
     Dosage: DOSE : 20 MG 2 TABLETS  FOR 100 DAYS
     Route: 048
  10. CELEXA [Concomitant]
     Indication: RHEUMATOID ARTHRITIS
     Route: 048
     Dates: start: 201109
  11. CELEXA [Concomitant]
     Indication: DEPRESSION
     Route: 048
     Dates: start: 201109
  12. DEXILANT DR [Concomitant]
     Dosage: 60 MG QD AS NEEDED
     Route: 048
  13. DEXILANT DR [Concomitant]
     Route: 048
     Dates: start: 20110120
  14. FLEXERIL [Concomitant]
     Indication: MYALGIA
     Dosage: 1 TAB QD AS NECESSARY
     Route: 048
     Dates: start: 200809
  15. METHOTREXATE [Concomitant]
     Indication: RHEUMATOID ARTHRITIS
     Dosage: DOSE : 2.5 MG  ,6 TABLETS
     Route: 048
     Dates: start: 20080430
  16. METHOTREXATE [Concomitant]
     Indication: RHEUMATOID ARTHRITIS
     Route: 048
     Dates: start: 20110120
  17. MIRAPEX [Concomitant]
     Indication: DEPRESSION
     Dosage: 2 TABLETS AT EVERY BED TIME FOR 100 DAYS
     Route: 048
  18. MIRAPEX [Concomitant]
     Indication: DEPRESSION
     Dosage: 2 TAB
     Route: 048
     Dates: start: 20120427
  19. LYRICA [Concomitant]
     Indication: RHEUMATOID ARTHRITIS
     Dosage: 75 MG 2 TABLETS FOR 100 DAYS
     Route: 048
  20. LYRICA [Concomitant]
     Indication: RHEUMATOID ARTHRITIS
     Dosage: DOSE : 150 MG AT BED TIME
     Route: 048
     Dates: start: 20090301

REACTIONS (2)
  - Nephrolithiasis [Recovered/Resolved]
  - Sepsis [Recovered/Resolved]
